FAERS Safety Report 9587654 (Version 2)
Quarter: 2013Q4

REPORT INFORMATION
  Report Type: Spontaneous
  Country: US (occurrence: US)
  Receive Date: 20131003
  Receipt Date: 20131003
  Transmission Date: 20140711
  Serious: Yes (Death)
  Sender: FDA-Public Use
  Company Number: US-COVIDIEN/TYCO HEALTHCARE/MALLINCKRODT-T201304167

PATIENT
  Age: 25 Year
  Sex: Female
  Weight: 90.7 kg

DRUGS (3)
  1. HYDROMORPHONE [Suspect]
     Indication: ABDOMINAL PAIN UPPER
     Dosage: 4 MG, Q 4 HRS, PRN
     Route: 048
     Dates: start: 20110225
  2. LORAZEPAM [Concomitant]
     Dosage: UNK
  3. FENERGAN                           /00033001/ [Concomitant]
     Dosage: UNK

REACTIONS (2)
  - Overdose [Fatal]
  - Drug dependence [None]
